FAERS Safety Report 6846246-4 (Version None)
Quarter: 2010Q3

REPORT INFORMATION
  Report Type: 
  Country: None (occurrence: None)
  Receive Date: 20100715
  Receipt Date: 20070925
  Transmission Date: 20110219
  Serious: No
  Sender: FDA-Public Use
  Company Number: US-PFIZER INC-2007078249

PATIENT
  Sex: Female
  Weight: 50.5 kg

DRUGS (4)
  1. CHANTIX [Suspect]
     Indication: SMOKING CESSATION THERAPY
     Dates: start: 20070906, end: 20070914
  2. LOPRESSOR [Concomitant]
  3. BENICAR [Concomitant]
  4. VYTORIN [Concomitant]

REACTIONS (6)
  - FATIGUE [None]
  - FEELING ABNORMAL [None]
  - INSOMNIA [None]
  - MALAISE [None]
  - NAUSEA [None]
  - RETCHING [None]
